FAERS Safety Report 17924929 (Version 2)
Quarter: 2021Q3

REPORT INFORMATION
  Report Type: Spontaneous
  Country: US (occurrence: US)
  Receive Date: 20200622
  Receipt Date: 20210824
  Transmission Date: 20211014
  Serious: Yes (Other)
  Sender: FDA-Public Use
  Company Number: US-ASTRAZENECA-2020SE77660

PATIENT
  Age: 17870 Day
  Sex: Female

DRUGS (41)
  1. LOSARTAN. [Concomitant]
     Active Substance: LOSARTAN
     Indication: BLOOD PRESSURE ABNORMAL
     Dates: start: 2016, end: 2019
  2. TRAMADOL. [Concomitant]
     Active Substance: TRAMADOL
     Indication: PAIN
     Dates: start: 201706
  3. OXYCODONE [Concomitant]
     Active Substance: OXYCODONE
  4. PAROXETINE. [Concomitant]
     Active Substance: PAROXETINE
  5. PROTONIX [Suspect]
     Active Substance: PANTOPRAZOLE SODIUM
     Indication: GASTROOESOPHAGEAL REFLUX DISEASE
     Route: 065
     Dates: start: 201705, end: 201707
  6. VANCOMYCIN [Concomitant]
     Active Substance: VANCOMYCIN
     Indication: URINARY TRACT INFECTION
     Dates: start: 201706
  7. HYDROCHLOROTHIAZIDE. [Concomitant]
     Active Substance: HYDROCHLOROTHIAZIDE
     Indication: OEDEMA
     Dates: start: 2017
  8. AMITRIPTYLINE [Concomitant]
     Active Substance: AMITRIPTYLINE
  9. LATUDA [Concomitant]
     Active Substance: LURASIDONE HYDROCHLORIDE
  10. NAPROXEN. [Concomitant]
     Active Substance: NAPROXEN
  11. SENNA [Concomitant]
     Active Substance: SENNA LEAF\SENNOSIDES\SENNOSIDES A AND B
  12. NEXIUM [Suspect]
     Active Substance: ESOMEPRAZOLE MAGNESIUM
     Indication: GASTROOESOPHAGEAL REFLUX DISEASE
     Route: 048
     Dates: start: 2016, end: 2017
  13. RANITIDINE. [Concomitant]
     Active Substance: RANITIDINE
     Dates: start: 201801, end: 201908
  14. PANTOPRAZOLE [Concomitant]
     Active Substance: PANTOPRAZOLE
  15. ATORVASTATIN [Concomitant]
     Active Substance: ATORVASTATIN
     Indication: BLOOD CHOLESTEROL ABNORMAL
     Dates: start: 2018
  16. FERROUS SULFATE. [Concomitant]
     Active Substance: FERROUS SULFATE
     Indication: ANAEMIA
     Dates: start: 2018, end: 2019
  17. CLONIDINE. [Concomitant]
     Active Substance: CLONIDINE
  18. LIDOCAINE. [Concomitant]
     Active Substance: LIDOCAINE
  19. CHANTIX [Concomitant]
     Active Substance: VARENICLINE TARTRATE
  20. IRON [Concomitant]
     Active Substance: IRON
  21. MELOXICAM. [Concomitant]
     Active Substance: MELOXICAM
  22. NEXIUM 24HR [Suspect]
     Active Substance: ESOMEPRAZOLE MAGNESIUM
     Indication: GASTROOESOPHAGEAL REFLUX DISEASE
     Route: 048
     Dates: start: 201612, end: 201709
  23. AMLODIPINE [Concomitant]
     Active Substance: AMLODIPINE BESYLATE
     Indication: BLOOD PRESSURE ABNORMAL
     Dates: start: 2016, end: 2019
  24. DICLOFENAC SODIUM. [Concomitant]
     Active Substance: DICLOFENAC SODIUM
  25. MORPHINE [Concomitant]
     Active Substance: MORPHINE
  26. DIAZEPAM. [Concomitant]
     Active Substance: DIAZEPAM
  27. CYCLOBENZAPRINE. [Concomitant]
     Active Substance: CYCLOBENZAPRINE
  28. IBUPROFEN. [Concomitant]
     Active Substance: IBUPROFEN
  29. NEXIUM [Suspect]
     Active Substance: ESOMEPRAZOLE MAGNESIUM
     Indication: GASTROOESOPHAGEAL REFLUX DISEASE
     Route: 048
     Dates: start: 201612, end: 201709
  30. LEVOFLOXACIN. [Concomitant]
     Active Substance: LEVOFLOXACIN
     Indication: URINARY TRACT INFECTION
     Dates: start: 201705
  31. PEPCID [Concomitant]
     Active Substance: FAMOTIDINE
     Dates: start: 20170614
  32. SODIUM CHLORIDE. [Concomitant]
     Active Substance: SODIUM CHLORIDE
  33. NEXIUM 24HR [Suspect]
     Active Substance: ESOMEPRAZOLE MAGNESIUM
     Indication: GASTROOESOPHAGEAL REFLUX DISEASE
     Route: 048
     Dates: start: 2016, end: 2017
  34. LISINOPRIL. [Concomitant]
     Active Substance: LISINOPRIL
     Indication: HYPERTENSION
     Dates: start: 2015, end: 2019
  35. FLUTICASONE. [Concomitant]
     Active Substance: FLUTICASONE
  36. ONDANSETRON [Concomitant]
     Active Substance: ONDANSETRON
  37. HALDOL [Concomitant]
     Active Substance: HALOPERIDOL
     Dates: start: 201706
  38. LITHIUM. [Concomitant]
     Active Substance: LITHIUM
     Dates: start: 201706
  39. BACLOFEN. [Concomitant]
     Active Substance: BACLOFEN
  40. VOLTAREN [Concomitant]
     Active Substance: DICLOFENAC SODIUM
  41. HALOPERIDOL. [Concomitant]
     Active Substance: HALOPERIDOL

REACTIONS (2)
  - Acute kidney injury [Not Recovered/Not Resolved]
  - Renal failure [Unknown]

NARRATIVE: CASE EVENT DATE: 20170523
